FAERS Safety Report 8895352 (Version 1)
Quarter: 2012Q4

REPORT INFORMATION
  Report Type: 
  Country: US (occurrence: US)
  Receive Date: 20121108
  Receipt Date: 20121108
  Transmission Date: 20130627
  Serious: No
  Sender: FDA-Public Use
  Company Number: US-PFIZER INC-2012278791

PATIENT
  Age: 73 Year
  Sex: Female
  Weight: 90.7 kg

DRUGS (7)
  1. LYRICA [Suspect]
     Indication: NERVE PAIN
     Dosage: 75 mg, daily
     Dates: start: 201207
  2. CELEBREX [Suspect]
     Indication: ARTHRITIS
     Dosage: 100 mg, daily
  3. INDERAL [Concomitant]
     Indication: BLOOD PRESSURE HIGH
     Dosage: 80 mg, daily
  4. HYDROCHLOROTHIAZIDE [Concomitant]
     Indication: DIURETIC THERAPY
     Dosage: 12.5 mg, daily
  5. POTASSIUM [Concomitant]
     Indication: BLOOD PRESSURE HIGH
     Dosage: 10 mg, daily
  6. METFORMIN [Concomitant]
     Indication: DIABETES
     Dosage: 500 mg, daily
  7. PROTONIX [Concomitant]
     Indication: ACID REFLUX (ESOPHAGEAL)
     Dosage: 40 mg, daily

REACTIONS (9)
  - Oedema peripheral [Unknown]
  - Abdominal distension [Not Recovered/Not Resolved]
  - Dyspnoea [Not Recovered/Not Resolved]
  - Vision blurred [Unknown]
  - Dry eye [Unknown]
  - Eye irritation [Unknown]
  - Eye pruritus [Unknown]
  - Somnolence [Unknown]
  - Pruritus [Unknown]
